FAERS Safety Report 8502504-9 (Version None)
Quarter: 2012Q3

REPORT INFORMATION
  Report Type: 
  Country: None (occurrence: None)
  Receive Date: 20120711
  Receipt Date: 20120702
  Transmission Date: 20120928
  Serious: Yes (Other)
  Sender: FDA-Public Use
  Company Number: US-BAYER-201042099NA

PATIENT
  Age: 64 Year
  Sex: Male
  Weight: 90 kg

DRUGS (19)
  1. LABETALOL HCL [Concomitant]
  2. PHENYLEPHRINE HCL [Concomitant]
     Dosage: UNK
     Route: 042
     Dates: start: 20060428, end: 20060428
  3. HEPARIN [Concomitant]
     Dosage: 44000 U, BYPASS PRIME
     Dates: start: 20060428, end: 20060428
  4. DOPAMINE HCL [Concomitant]
     Dosage: UNK
     Route: 042
     Dates: start: 20060428, end: 20060428
  5. FORANE [Concomitant]
     Dosage: UNK
     Route: 045
     Dates: start: 20060428, end: 20060428
  6. PAVULON [Concomitant]
     Dosage: UNK
     Dates: start: 20060428, end: 20060428
  7. TRASYLOL [Suspect]
     Indication: CORONARY REVASCULARISATION
     Dosage: UNK
     Dates: start: 20060428
  8. AMICAR [Concomitant]
     Dosage: 10 G, PUMP PRIME
     Dates: start: 20060428
  9. AMICAR [Concomitant]
     Dosage: 1 G/HOUR INFUSION
     Dates: start: 20060428
  10. VANCOMYCIN [Concomitant]
     Dosage: 1 G, UNK
     Route: 042
     Dates: start: 20060428, end: 20060428
  11. RED BLOOD CELLS [Concomitant]
  12. APRESOLINE [Concomitant]
  13. PROTAMINE SULFATE [Concomitant]
     Dosage: 325 MG, BYPASS PRIME
     Dates: start: 20060428
  14. FENTANYL [Concomitant]
     Dosage: 13.5 ML, UNK
     Route: 042
     Dates: start: 20060428, end: 20060428
  15. AMIODARONE HCL [Concomitant]
     Dosage: 150 ML, UNK
     Route: 042
     Dates: start: 20060428, end: 20060428
  16. NORVASC [Concomitant]
  17. PROPOFOL [Concomitant]
     Dosage: 7 ML, UNK
     Dates: start: 20060428, end: 20060428
  18. VALIUM [Concomitant]
     Dosage: 5 MG, UNK
     Route: 042
     Dates: start: 20060428, end: 20060428
  19. AMICAR [Concomitant]
     Dosage: 10 G, BOLUS
     Dates: start: 20060428

REACTIONS (14)
  - ANHEDONIA [None]
  - RENAL INJURY [None]
  - FEAR [None]
  - FEAR OF DEATH [None]
  - PAIN [None]
  - DISABILITY [None]
  - MULTI-ORGAN FAILURE [None]
  - INJURY [None]
  - ANXIETY [None]
  - RENAL FAILURE [None]
  - EMOTIONAL DISTRESS [None]
  - NERVOUSNESS [None]
  - UNEVALUABLE EVENT [None]
  - DEPRESSION [None]
